FAERS Safety Report 18501914 (Version 1)
Quarter: 2020Q4

REPORT INFORMATION
  Report Type: Spontaneous
  Country: JP (occurrence: JP)
  Receive Date: 20201113
  Receipt Date: 20201113
  Transmission Date: 20210114
  Serious: Yes (Hospitalization)
  Sender: FDA-Public Use
  Company Number: JP-ASTRAZENECA-2020SF48079

PATIENT
  Sex: Female

DRUGS (3)
  1. SYMBICORT [Suspect]
     Active Substance: BUDESONIDE\FORMOTEROL FUMARATE DIHYDRATE
     Indication: ASTHMA
     Dosage: DOSE UNKNOWN
     Route: 055
  2. SYMBICORT [Suspect]
     Active Substance: BUDESONIDE\FORMOTEROL FUMARATE DIHYDRATE
     Indication: ASTHMA
     Dosage: DOSE UNKNOWN
     Route: 055
  3. BUDEFORU [Concomitant]
     Indication: ASTHMA
     Dosage: DOSE UNKNOWN
     Route: 065

REACTIONS (7)
  - Throat irritation [Unknown]
  - Sputum retention [Unknown]
  - Rheumatic disorder [Unknown]
  - Tongue dry [Unknown]
  - Eructation [Unknown]
  - Dysphagia [Unknown]
  - Dysphonia [Unknown]

NARRATIVE: CASE EVENT DATE: 2019
